FAERS Safety Report 25457697 (Version 1)
Quarter: 2025Q2

REPORT INFORMATION
  Report Type: Report from Study
  Country: CA (occurrence: CA)
  Receive Date: 20250619
  Receipt Date: 20250619
  Transmission Date: 20250717
  Serious: Yes (Hospitalization)
  Sender: ABBVIE
  Company Number: CA-ABBVIE-6334144

PATIENT
  Sex: Male

DRUGS (1)
  1. SKYRIZI [Suspect]
     Active Substance: RISANKIZUMAB-RZAA
     Indication: Psoriasis
     Dosage: FORM STRENGTH: 150MG/ML
     Route: 058
     Dates: start: 20230702, end: 20250602

REACTIONS (1)
  - Lung disorder [Not Recovered/Not Resolved]
